FAERS Safety Report 7410666-X (Version None)
Quarter: 2011Q1

REPORT INFORMATION
  Report Type: 
  Country: None (occurrence: None)
  Receive Date: 20110302
  Receipt Date: 20110118
  Transmission Date: 20110831
  Serious: No
  Sender: FDA-Public Use
  Company Number: 025800

PATIENT
  Sex: Female
  Weight: 62.6 kg

DRUGS (2)
  1. CIMZIA [Suspect]
     Indication: CROHN'S DISEASE
     Dosage: 400 MG1X/MONTH SUBCUTANEOUS
     Route: 058
     Dates: start: 20100901, end: 20101221
  2. DEXLANSOPRAZOLE [Concomitant]

REACTIONS (2)
  - ABDOMINAL MASS [None]
  - PAIN [None]
